FAERS Safety Report 5651370-8 (Version None)
Quarter: 2008Q1

REPORT INFORMATION
  Report Type: 
  Country: None (occurrence: None)
  Receive Date: 20080305
  Receipt Date: 20080222
  Transmission Date: 20080703
  Serious: Yes (Other)
  Sender: FDA-Public Use
  Company Number: BE-ELI_LILLY_AND_COMPANY-BE200802005448

PATIENT
  Sex: Female

DRUGS (6)
  1. CYMBALTA [Suspect]
     Indication: DEPRESSION
     Dosage: 60 MG, DAILY (1/D)
     Route: 048
     Dates: start: 20071115, end: 20080105
  2. CARVEDILOL [Concomitant]
     Dosage: 25 MG, DAILY (1/D)
     Route: 048
  3. DURAGESIC-100 [Concomitant]
     Dosage: 25 MG, 3/W
     Route: 062
  4. CALCIUM [Concomitant]
     Dosage: 1 G, DAILY (1/D)
     Route: 048
  5. EVISTA [Concomitant]
     Dosage: 60 MG, DAILY (1/D)
     Route: 048
  6. D-CURE [Concomitant]
     Dosage: UNK UNK, MONTHLY (1/M)
     Route: 065

REACTIONS (2)
  - HALLUCINATION [None]
  - MEMORY IMPAIRMENT [None]
